FAERS Safety Report 6860210-0 (Version None)
Quarter: 2010Q3

REPORT INFORMATION
  Report Type: 
  Country: None (occurrence: None)
  Receive Date: 20100720
  Receipt Date: 20100715
  Transmission Date: 20110219
  Serious: Yes (Death, Other)
  Sender: FDA-Public Use
  Company Number: US-BRACCO-002917

PATIENT
  Sex: Male

DRUGS (50)
  1. MULTIHANCE [Suspect]
     Indication: NUCLEAR MAGNETIC RESONANCE IMAGING
     Route: 042
     Dates: start: 20070731, end: 20070731
  2. MAGNEVIST [Suspect]
     Indication: NUCLEAR MAGNETIC RESONANCE IMAGING
     Route: 042
     Dates: start: 20060208, end: 20060208
  3. MAGNEVIST [Suspect]
     Route: 042
     Dates: start: 20060209, end: 20060209
  4. MAGNEVIST [Suspect]
     Indication: NUCLEAR MAGNETIC RESONANCE IMAGING BRAIN
     Route: 042
     Dates: start: 20060504, end: 20060504
  5. MAGNEVIST [Suspect]
     Route: 042
     Dates: start: 20060505, end: 20060505
  6. MAGNEVIST [Suspect]
     Indication: METASTASES TO CENTRAL NERVOUS SYSTEM
     Route: 042
     Dates: start: 20050823, end: 20050823
  7. MAGNEVIST [Suspect]
     Indication: METASTATIC RENAL CELL CARCINOMA
     Route: 042
     Dates: start: 20050928, end: 20050928
  8. MAGNEVIST [Suspect]
     Route: 042
     Dates: start: 20051115, end: 20051115
  9. MAGNEVIST [Suspect]
     Route: 042
     Dates: start: 20051116, end: 20051116
  10. MAGNEVIST [Suspect]
     Route: 042
     Dates: start: 20050207, end: 20050207
  11. MAGNEVIST [Suspect]
     Route: 042
     Dates: start: 20041231, end: 20041231
  12. MAGNEVIST [Suspect]
     Route: 042
     Dates: start: 20050310, end: 20050310
  13. MAGNEVIST [Suspect]
     Route: 042
     Dates: start: 20050404, end: 20050404
  14. MAGNEVIST [Suspect]
     Route: 042
     Dates: start: 20050624, end: 20050624
  15. MAGNEVIST [Suspect]
     Route: 042
     Dates: start: 20050627, end: 20050627
  16. MAGNEVIST [Suspect]
     Route: 042
     Dates: start: 20050311, end: 20050311
  17. MAGNEVIST [Suspect]
     Route: 042
     Dates: start: 20070508, end: 20070508
  18. MAGNEVIST [Suspect]
     Route: 065
     Dates: start: 20070615, end: 20070615
  19. MAGNEVIST [Suspect]
     Route: 042
     Dates: start: 20070801, end: 20070801
  20. MAGNEVIST [Suspect]
     Route: 042
     Dates: start: 20061115, end: 20061115
  21. MAGNEVIST [Suspect]
     Route: 042
     Dates: start: 20070321, end: 20070321
  22. MAGNEVIST [Suspect]
     Route: 042
     Dates: start: 20071114, end: 20071114
  23. MAGNEVIST [Suspect]
     Route: 042
     Dates: start: 20070904, end: 20070904
  24. MAGNEVIST [Suspect]
     Route: 042
     Dates: start: 20060808, end: 20060808
  25. MAGNEVIST [Suspect]
     Route: 042
     Dates: start: 20061114, end: 20061114
  26. MAGNEVIST [Suspect]
     Route: 042
     Dates: start: 20070320, end: 20070320
  27. MAGNEVIST [Suspect]
     Route: 042
     Dates: start: 20070509, end: 20070509
  28. MAGNEVIST [Suspect]
     Route: 042
     Dates: start: 20070618, end: 20070618
  29. MAGNEVIST [Suspect]
     Route: 042
     Dates: start: 20070731, end: 20070731
  30. MAGNEVIST [Suspect]
     Route: 042
     Dates: start: 20080219, end: 20080219
  31. MAGNEVIST [Suspect]
     Route: 065
     Dates: start: 20080418, end: 20080418
  32. MAGNEVIST [Suspect]
     Route: 065
     Dates: start: 20080423, end: 20080423
  33. MAGNEVIST [Suspect]
     Route: 042
     Dates: start: 20080220, end: 20080220
  34. MAGNEVIST [Suspect]
     Route: 042
     Dates: start: 20041230, end: 20041230
  35. OMNISCAN [Suspect]
     Indication: NUCLEAR MAGNETIC RESONANCE IMAGING BRAIN
     Route: 042
     Dates: start: 20041220, end: 20041220
  36. OMNISCAN [Suspect]
     Indication: ANGIOGRAM CEREBRAL
     Route: 042
     Dates: start: 20060809, end: 20060809
  37. OMNISCAN [Suspect]
     Indication: METASTATIC RENAL CELL CARCINOMA
     Route: 042
     Dates: start: 20041220, end: 20041220
  38. KEPPRA [Concomitant]
     Indication: CONVULSION
     Route: 048
  39. ANALGESICS [Concomitant]
     Indication: PAIN
     Route: 065
  40. GEMCITABINE HCL [Concomitant]
  41. CAPECITABINE [Concomitant]
  42. PLAVIX [Concomitant]
  43. ANTINEOPLASTIC AGENTS [Concomitant]
     Indication: NEOPLASM MALIGNANT
  44. MIRALAX [Concomitant]
     Indication: CONSTIPATION
  45. SORAFENIB [Concomitant]
     Indication: NEOPLASM MALIGNANT
     Dosage: DURATION 1 YEAR
     Route: 065
     Dates: start: 20060101, end: 20070101
  46. ANTINEOPLASTIC AGENTS [Concomitant]
     Indication: NEOPLASM
     Route: 065
     Dates: end: 20070101
  47. INTERFERON [Concomitant]
     Indication: NEOPLASM
     Dosage: DURATION 1 YEAR
     Route: 065
     Dates: start: 20050101, end: 20060101
  48. ASPIRIN [Concomitant]
  49. AMBIEN [Concomitant]
  50. ATIVAN [Concomitant]
     Indication: ANXIETY

REACTIONS (2)
  - NEPHROGENIC SYSTEMIC FIBROSIS [None]
  - RENAL CELL CARCINOMA [None]
